FAERS Safety Report 8508314-0 (Version None)
Quarter: 2012Q2

REPORT INFORMATION
  Report Type: 
  Country: None (occurrence: None)
  Receive Date: 20120405
  Receipt Date: 20090203
  Transmission Date: 20120825
  Serious: Yes (Hospitalization)
  Sender: FDA-Public Use
  Company Number: PHEH2009US01412

PATIENT
  Age: 76 Year
  Sex: Female
  Weight: 90.7 kg

DRUGS (6)
  1. ARAVA [Concomitant]
  2. RECLAST [Suspect]
     Indication: OSTEOPOROSIS
     Dosage: 5 MG, ONCE SINGLE, INTRAVENOUS
     Route: 042
     Dates: start: 20090106, end: 20090106
  3. LIPITOR [Concomitant]
  4. ACIPHEX [Concomitant]
  5. ALDACTONE [Concomitant]
  6. AMARYL [Concomitant]

REACTIONS (3)
  - RENAL FAILURE ACUTE [None]
  - DIALYSIS [None]
  - BLOOD CREATININE INCREASED [None]
